FAERS Safety Report 5837568-4 (Version None)
Quarter: 2008Q3

REPORT INFORMATION
  Report Type: 
  Country: None (occurrence: None)
  Receive Date: 20080807
  Receipt Date: 20080731
  Transmission Date: 20090109
  Serious: Yes (Other)
  Sender: FDA-Public Use
  Company Number: JP-PFIZER INC-2008064442

PATIENT
  Age: 84 Year
  Sex: Male

DRUGS (1)
  1. MEDROL [Suspect]
     Indication: MUSCULOSKELETAL PAIN
     Route: 048

REACTIONS (2)
  - ADRENAL INSUFFICIENCY [None]
  - HYPOGLYCAEMIA [None]
